FAERS Safety Report 24980991 (Version 6)
Quarter: 2025Q3

REPORT INFORMATION
  Report Type: Report from Study
  Country: US (occurrence: US)
  Receive Date: 20250218
  Receipt Date: 20250929
  Transmission Date: 20251020
  Serious: Yes (Other)
  Sender: UCB
  Company Number: US-UCBSA-2025008799

PATIENT
  Age: 19 Year
  Sex: Female
  Weight: 49.4 kg

DRUGS (6)
  1. FINTEPLA [Suspect]
     Active Substance: FENFLURAMINE
     Indication: Lennox-Gastaut syndrome
     Dosage: 6 MILLILITER, 2X/DAY (BID)
     Route: 048
     Dates: start: 20230217
  2. FINTEPLA [Suspect]
     Active Substance: FENFLURAMINE
     Dosage: 6 MILLILITER, 2X/DAY (BID)
  3. PERAMPANEL [Concomitant]
     Active Substance: PERAMPANEL
     Indication: Product used for unknown indication
     Dates: start: 20250210
  4. ESLICARBAZEPINE [Concomitant]
     Active Substance: ESLICARBAZEPINE
     Indication: Product used for unknown indication
     Dates: start: 20250610
  5. DIVALPROEX SODIUM [Concomitant]
     Active Substance: DIVALPROEX SODIUM
     Indication: Product used for unknown indication
     Dosage: 250 MILLIGRAM, 2X/DAY (BID)
     Dates: start: 20250616
  6. VALPROATE [Concomitant]
     Active Substance: VALPROIC ACID
     Indication: Product used for unknown indication
     Dates: start: 20250814

REACTIONS (10)
  - Mitral valve incompetence [Not Recovered/Not Resolved]
  - Tricuspid valve incompetence [Not Recovered/Not Resolved]
  - Pulmonary valve incompetence [Not Recovered/Not Resolved]
  - Mitral valve thickening [Not Recovered/Not Resolved]
  - Gastrostomy [Not Recovered/Not Resolved]
  - Mitral valve prolapse [Not Recovered/Not Resolved]
  - Left atrial dilatation [Not Recovered/Not Resolved]
  - Aortic dilatation [Unknown]
  - Anxiety [Unknown]
  - Left ventricular dilatation [Not Recovered/Not Resolved]

NARRATIVE: CASE EVENT DATE: 20240916
